FAERS Safety Report 7468270-3 (Version None)
Quarter: 2011Q2

REPORT INFORMATION
  Report Type: 
  Country: None (occurrence: None)
  Receive Date: 20110509
  Receipt Date: 20110430
  Transmission Date: 20111010
  Serious: Yes (Other)
  Sender: FDA-Public Use
  Company Number: PHHY2011US37145

PATIENT
  Sex: Female

DRUGS (1)
  1. GILENYA [Suspect]
     Dosage: 0.5 MG, QD
     Route: 048
     Dates: start: 20110301

REACTIONS (5)
  - HEART RATE DECREASED [None]
  - PARAESTHESIA [None]
  - SOMNOLENCE [None]
  - NASOPHARYNGITIS [None]
  - HYPOTENSION [None]
